FAERS Safety Report 20571169 (Version 1)
Quarter: 2022Q1

REPORT INFORMATION
  Report Type: Spontaneous
  Country: CA (occurrence: CA)
  Receive Date: 20220309
  Receipt Date: 20220309
  Transmission Date: 20220423
  Serious: Yes (Other)
  Sender: FDA-Public Use
  Company Number: None

PATIENT
  Age: 83 Year
  Sex: Male

DRUGS (1)
  1. AMLODIPINE [Suspect]
     Active Substance: AMLODIPINE BESYLATE
     Indication: Hypertension
     Route: 065

REACTIONS (6)
  - Blindness unilateral [Unknown]
  - Blood pressure fluctuation [Unknown]
  - Injury [Unknown]
  - Muscular weakness [Unknown]
  - Prostatic disorder [Unknown]
  - Retinal injury [Unknown]
